FAERS Safety Report 6618723-2 (Version None)
Quarter: 2010Q1

REPORT INFORMATION
  Report Type: 
  Country: None (occurrence: None)
  Receive Date: 20100305
  Receipt Date: 20100305
  Transmission Date: 20100710
  Serious: Yes (Disabling, Other)
  Sender: FDA-Public Use
  Company Number: None

PATIENT
  Age: 36 Year
  Sex: Male
  Weight: 99.7913 kg

DRUGS (2)
  1. SEROQUEL [Suspect]
     Indication: BIPOLAR DISORDER
     Dosage: 100 MG ONCE NIGHTLY 047
     Dates: start: 20100101, end: 20100221
  2. SEROQUEL [Suspect]
     Indication: SCHIZOPHRENIA
     Dosage: 100 MG ONCE NIGHTLY 047
     Dates: start: 20100101, end: 20100221

REACTIONS (6)
  - DRUG INEFFECTIVE [None]
  - INSOMNIA [None]
  - MENTAL DISORDER [None]
  - MUSCLE TWITCHING [None]
  - PALPITATIONS [None]
  - PRODUCT SUBSTITUTION ISSUE [None]
